FAERS Safety Report 15320906 (Version 1)
Quarter: 2018Q3

REPORT INFORMATION
  Report Type: Spontaneous
  Country: US (occurrence: US)
  Receive Date: 20180827
  Receipt Date: 20180827
  Transmission Date: 20181010
  Serious: No
  Sender: FDA-Public Use
  Company Number: US-TEVA-2018-US-947915

PATIENT
  Sex: Female

DRUGS (2)
  1. HYDROXYCARBAMIDE [Suspect]
     Active Substance: HYDROXYUREA
     Indication: POLYCYTHAEMIA VERA
     Dosage: 500 MILLIGRAM DAILY; ON MONDAY, TUESDAY, THURSDAY, FRIDAY, SATURDAY
     Dates: start: 201704
  2. HYDROXYCARBAMIDE [Suspect]
     Active Substance: HYDROXYUREA
     Dosage: 1000 MILLIGRAM DAILY; ON WEDNESDAY AND SUNDAY
     Dates: start: 201704

REACTIONS (5)
  - Asthenia [Unknown]
  - Skin hyperpigmentation [Unknown]
  - Loose tooth [Unknown]
  - Rash [Unknown]
  - Weight increased [Unknown]
